FAERS Safety Report 4316620-9 (Version None)
Quarter: 2004Q1

REPORT INFORMATION
  Report Type: 
  Country: None (occurrence: None)
  Receive Date: 20040311
  Receipt Date: 20040228
  Transmission Date: 20041129
  Serious: Yes (Hospitalization)
  Sender: FDA-Public Use
  Company Number: 2004007844

PATIENT
  Age: 49 Year
  Sex: Male
  Weight: 66.6788 kg

DRUGS (1)
  1. NORVASC [Suspect]
     Indication: ESSENTIAL HYPERTENSION
     Dosage: 10 MG (DAILY), ORAL
     Route: 048
     Dates: end: 20040201

REACTIONS (1)
  - HYPERTENSION [None]
